FAERS Safety Report 7378790-8 (Version None)
Quarter: 2011Q1

REPORT INFORMATION
  Report Type: 
  Country: None (occurrence: None)
  Receive Date: 20110328
  Receipt Date: 20100224
  Transmission Date: 20110831
  Serious: Yes (Other)
  Sender: FDA-Public Use
  Company Number: PHHY2010DE11778

PATIENT
  Sex: Male
  Weight: 70 kg

DRUGS (2)
  1. ATOSIL [Concomitant]
     Dosage: UNK
  2. EXTAVIA [Suspect]
     Indication: RELAPSING-REMITTING MULTIPLE SCLEROSIS
     Dosage: 0.25 MG, QOD
     Route: 058
     Dates: start: 20100201

REACTIONS (9)
  - MASS [None]
  - MENTAL DISORDER [None]
  - DEPRESSED MOOD [None]
  - INFLUENZA LIKE ILLNESS [None]
  - INJECTION SITE PAIN [None]
  - PANIC ATTACK [None]
  - HEADACHE [None]
  - ARTHRALGIA [None]
  - STRESS [None]
